FAERS Safety Report 5089128-3 (Version None)
Quarter: 2006Q3

REPORT INFORMATION
  Report Type: 
  Country: None (occurrence: None)
  Receive Date: 20060825
  Receipt Date: 20060821
  Transmission Date: 20061208
  Serious: Yes (Life-Threatening)
  Sender: FDA-Public Use
  Company Number: ES-BOEHRINGER INGELHEIM PHARMACEUTICALS, INC.-2006-ES-00296ES

PATIENT
  Age: 2 Year
  Sex: Male

DRUGS (3)
  1. ATROVENT [Suspect]
     Route: 055
     Dates: start: 20060101
  2. SINGULAIR [Concomitant]
     Route: 048
     Dates: start: 20060101
  3. SERETIDE [Concomitant]
     Dosage: FLUTICASONA PROPIONATO + SALMETEROL HIDROXINAFTOATO 25/50 MCG
     Route: 055
     Dates: start: 20060101

REACTIONS (2)
  - ASTHMA [None]
  - SKIN TEST POSITIVE [None]
